FAERS Safety Report 9732180 (Version 1)
Quarter: 2013Q4

REPORT INFORMATION
  Report Type: Spontaneous
  Country: BR (occurrence: BR)
  Receive Date: 20131205
  Receipt Date: 20131205
  Transmission Date: 20140711
  Serious: Yes (Other)
  Sender: FDA-Public Use
  Company Number: BR-SA-2013SA123605

PATIENT
  Age: 54 Year
  Sex: Male
  Weight: 66 kg

DRUGS (4)
  1. LANTUS [Suspect]
     Indication: TYPE 1 DIABETES MELLITUS
     Dosage: STRENGTH: 3ML
     Route: 058
     Dates: start: 2003
  2. APIDRA [Suspect]
     Indication: TYPE 1 DIABETES MELLITUS
     Dosage: IU DAILY IN ACCORDANCE WITH CARBOHYDRATE COUNT
     Route: 058
     Dates: start: 2003
  3. DEVICE NOS [Concomitant]
     Indication: DEVICE THERAPY
     Dates: start: 2003
  4. CLIKSTAR [Concomitant]
     Indication: DEVICE THERAPY
     Dates: start: 2003

REACTIONS (2)
  - Cerebrovascular accident [Not Recovered/Not Resolved]
  - Visual impairment [Not Recovered/Not Resolved]
